FAERS Safety Report 7179520-5 (Version None)
Quarter: 2010Q4

REPORT INFORMATION
  Report Type: 
  Country: None (occurrence: None)
  Receive Date: 20101221
  Receipt Date: 20101210
  Transmission Date: 20110411
  Serious: Yes (Other)
  Sender: FDA-Public Use
  Company Number: US-JNJCH-2010028813

PATIENT
  Age: 12 Year
  Sex: Male
  Weight: 45.4 kg

DRUGS (1)
  1. TUCKS PRE-MOISTENED PADS [Suspect]
     Indication: ASTRINGENT THERAPY
     Dosage: TEXT:ONE ONCE DAILY
     Route: 061
     Dates: start: 20101110, end: 20101210

REACTIONS (3)
  - APPLICATION SITE EXFOLIATION [None]
  - CHEMICAL INJURY [None]
  - OFF LABEL USE [None]
